FAERS Safety Report 9451203 (Version 2)
Quarter: 2013Q4

REPORT INFORMATION
  Report Type: Spontaneous
  Country: US (occurrence: US)
  Receive Date: 20130809
  Receipt Date: 20131121
  Transmission Date: 20140711
  Serious: Yes (Hospitalization)
  Sender: FDA-Public Use
  Company Number: US-GILEAD-2013-0081162

PATIENT
  Sex: Female

DRUGS (2)
  1. LETAIRIS [Suspect]
     Indication: PORTOPULMONARY HYPERTENSION
     Route: 048
     Dates: start: 20130717
  2. REVATIO [Concomitant]

REACTIONS (4)
  - Urinary tract infection [Unknown]
  - Dehydration [Unknown]
  - Hypotension [Unknown]
  - Dyspnoea [Unknown]
